FAERS Safety Report 15552164 (Version 4)
Quarter: 2019Q2

REPORT INFORMATION
  Report Type: Report from Study
  Country: US (occurrence: US)
  Receive Date: 20181025
  Receipt Date: 20190416
  Transmission Date: 20190711
  Serious: Yes (Hospitalization)
  Sender: FDA-Public Use
  Company Number: PHEH2018US044511

PATIENT
  Age: 77 Year
  Sex: Female

DRUGS (1)
  1. COSENTYX [Suspect]
     Active Substance: SECUKINUMAB
     Indication: PSORIASIS
     Dosage: 300 MG, Q4W
     Route: 058
     Dates: start: 20180418

REACTIONS (7)
  - Kidney infection [Unknown]
  - Colitis [Unknown]
  - Renal disorder [Unknown]
  - Bladder disorder [Unknown]
  - Stress [Recovering/Resolving]
  - Urinary tract infection [Unknown]
  - Psoriasis [Recovering/Resolving]
